FAERS Safety Report 4679841-1 (Version None)
Quarter: 2005Q2

REPORT INFORMATION
  Report Type: 
  Country: None (occurrence: None)
  Receive Date: 20050602
  Receipt Date: 20050106
  Transmission Date: 20051028
  Serious: No
  Sender: FDA-Public Use
  Company Number: US-GLAXOSMITHKLINE-A0539694A

PATIENT
  Age: 60 Year
  Sex: Male

DRUGS (1)
  1. AUGMENTIN XR [Suspect]
     Indication: BRONCHITIS
     Route: 048
     Dates: start: 20041228

REACTIONS (2)
  - DRUG INEFFECTIVE [None]
  - SINUSITIS [None]
